FAERS Safety Report 6331692-8 (Version None)
Quarter: 2009Q3

REPORT INFORMATION
  Report Type: 
  Country: None (occurrence: None)
  Receive Date: 20090827
  Receipt Date: 20090821
  Transmission Date: 20100115
  Serious: Yes (Hospitalization, Other)
  Sender: FDA-Public Use
  Company Number: US-GILEAD-2009-0023618

PATIENT
  Sex: Female

DRUGS (1)
  1. LETAIRIS [Suspect]
     Indication: PULMONARY ARTERIAL HYPERTENSION
     Route: 048
     Dates: start: 20090717, end: 20090720

REACTIONS (3)
  - DYSPNOEA [None]
  - PULMONARY OEDEMA [None]
  - SUPRAVENTRICULAR TACHYCARDIA [None]
